FAERS Safety Report 5534243-0 (Version None)
Quarter: 2007Q4

REPORT INFORMATION
  Report Type: 
  Country: None (occurrence: None)
  Receive Date: 20071203
  Receipt Date: 20071203
  Transmission Date: 20080405
  Serious: Yes (Hospitalization)
  Sender: FDA-Public Use
  Company Number: None

PATIENT
  Sex: Male
  Weight: 117.1 kg

DRUGS (1)
  1. DAPTOMYCIN 700MG IVPB Q 24 HOURS [Suspect]
     Indication: STAPHYLOCOCCAL INFECTION
     Dosage: 700MG Q 24 IVPB
     Route: 042
     Dates: start: 20071124, end: 20071201

REACTIONS (1)
  - BLOOD CREATINE PHOSPHOKINASE INCREASED [None]
